FAERS Safety Report 6501950-2 (Version None)
Quarter: 2009Q4

REPORT INFORMATION
  Report Type: 
  Country: None (occurrence: None)
  Receive Date: 20091216
  Receipt Date: 20091202
  Transmission Date: 20100525
  Serious: Yes (Other)
  Sender: FDA-Public Use
  Company Number: DE-MYLANLABS-2009S1020777

PATIENT
  Age: 48 Year
  Sex: Male

DRUGS (4)
  1. METODURA [Suspect]
     Indication: DRUG USE FOR UNKNOWN INDICATION
     Dates: start: 20090731, end: 20091010
  2. PANTOZOL [Concomitant]
     Indication: DRUG USE FOR UNKNOWN INDICATION
  3. METOCLOPRAMIDE [Concomitant]
     Indication: DRUG USE FOR UNKNOWN INDICATION
  4. KREON /00014701/ [Concomitant]
     Indication: DRUG USE FOR UNKNOWN INDICATION

REACTIONS (1)
  - POST GASTRIC SURGERY SYNDROME [None]
